FAERS Safety Report 13243303 (Version 1)
Quarter: 2017Q1

REPORT INFORMATION
  Report Type: Spontaneous
  Country: US (occurrence: US)
  Receive Date: 20170216
  Receipt Date: 20170216
  Transmission Date: 20170428
  Serious: No
  Sender: FDA-Public Use
  Company Number: US-APOTEX-2016AP012286

PATIENT
  Age: 35 Year
  Sex: Female

DRUGS (6)
  1. ACARBOSE. [Concomitant]
     Active Substance: ACARBOSE
     Dosage: 50 MG, TID
     Route: 065
  2. VERAPAMIL HYDROCHLORIDE. [Suspect]
     Active Substance: VERAPAMIL HYDROCHLORIDE
     Indication: HYPOGLYCAEMIA
     Dosage: 120 MG, DAILY
     Route: 065
  3. ACARBOSE. [Concomitant]
     Active Substance: ACARBOSE
     Indication: HYPOGLYCAEMIA
     Dosage: 25 MG, Q.Q.H
     Route: 065
  4. NIFEDIPINE. [Suspect]
     Active Substance: NIFEDIPINE
     Indication: HYPOGLYCAEMIA
     Dosage: 10 MG, BID
     Route: 065
  5. NIFEDIPINE. [Suspect]
     Active Substance: NIFEDIPINE
     Dosage: 20 MG, BID
     Route: 065
  6. ACARBOSE. [Concomitant]
     Active Substance: ACARBOSE
     Dosage: 75 MG, Q.Q.H
     Route: 065

REACTIONS (2)
  - Oedema peripheral [Unknown]
  - Off label use [Unknown]
